FAERS Safety Report 5766222-2 (Version None)
Quarter: 2008Q2

REPORT INFORMATION
  Report Type: 
  Country: None (occurrence: None)
  Receive Date: 20080606
  Receipt Date: 20080522
  Transmission Date: 20081010
  Serious: Yes (Hospitalization, Other)
  Sender: FDA-Public Use
  Company Number: 013605

PATIENT
  Age: 52 Year
  Sex: Male

DRUGS (4)
  1. PRIALT [Suspect]
     Indication: COMPLEX REGIONAL PAIN SYNDROME
     Dosage: UG, ONCE/HOUR, INTRATHECAL; 0.2 UG, ONCE/HOUR, INTRATHECAL; 0.29 UG, ONCE/HOUR, INTRATHECAL
     Route: 037
     Dates: end: 20080513
  2. PRIALT [Suspect]
     Indication: COMPLEX REGIONAL PAIN SYNDROME
     Dosage: UG, ONCE/HOUR, INTRATHECAL; 0.2 UG, ONCE/HOUR, INTRATHECAL; 0.29 UG, ONCE/HOUR, INTRATHECAL
     Route: 037
     Dates: start: 20080514
  3. MORPHINE [Concomitant]
  4. AMBIEN [Concomitant]

REACTIONS (9)
  - AMNESIA [None]
  - BLOOD PRESSURE DECREASED [None]
  - CONVULSION [None]
  - DISORIENTATION [None]
  - ERYTHEMA [None]
  - MEMORY IMPAIRMENT [None]
  - PNEUMONIA [None]
  - SOMNOLENCE [None]
  - VOMITING [None]
